FAERS Safety Report 8850946 (Version 2)
Quarter: 2012Q4

REPORT INFORMATION
  Report Type: 
  Country: ES (occurrence: ES)
  Receive Date: 20121019
  Receipt Date: 20121112
  Transmission Date: 20130627
  Serious: Yes (Hospitalization)
  Sender: FDA-Public Use
  Company Number: ES-SANOFI-AVENTIS-2012SA074674

PATIENT
  Age: 70 Year
  Sex: Female

DRUGS (2)
  1. SEGURIL [Suspect]
     Indication: HYPERTENSION
     Route: 048
     Dates: start: 20111015, end: 20111217
  2. INSPRA [Interacting]
     Indication: HYPERTENSION
     Dosage: strength: 25 mg
     Route: 048
     Dates: start: 2011, end: 20111217

REACTIONS (3)
  - Confusional state [Recovered/Resolved]
  - Drug interaction [Recovered/Resolved]
  - Hyponatraemia [Recovered/Resolved]
